FAERS Safety Report 16762733 (Version 1)
Quarter: 2019Q3

REPORT INFORMATION
  Report Type: Report from Study
  Country: RU (occurrence: RU)
  Receive Date: 20190901
  Receipt Date: 20190901
  Transmission Date: 20191005
  Serious: Yes (Hospitalization, Other)
  Sender: FDA-Public Use
  Company Number: PHHY2019RU201167

PATIENT
  Age: 58 Year
  Sex: Female

DRUGS (2)
  1. ESSENTIALE FORTE [Concomitant]
     Indication: PRODUCT USED FOR UNKNOWN INDICATION
     Dosage: UNK
     Route: 065
  2. GILENYA [Suspect]
     Active Substance: FINGOLIMOD HYDROCHLORIDE
     Indication: MULTIPLE SCLEROSIS
     Dosage: 1 DF, QD (DAILY IN THE MORNING)
     Route: 048
     Dates: start: 201606, end: 201810

REACTIONS (10)
  - Drug tolerance decreased [Recovered/Resolved]
  - Alanine aminotransferase increased [Recovered/Resolved]
  - Secondary progressive multiple sclerosis [Unknown]
  - Back pain [Recovered/Resolved]
  - Gamma-glutamyltransferase increased [Recovered/Resolved]
  - Asthenia [Recovered/Resolved]
  - Drug-induced liver injury [Recovered/Resolved]
  - Aspartate aminotransferase increased [Recovered/Resolved]
  - Multiple sclerosis [Recovered/Resolved]
  - Dyspepsia [Recovered/Resolved]

NARRATIVE: CASE EVENT DATE: 20161005
